FAERS Safety Report 10514096 (Version 4)
Quarter: 2015Q2

REPORT INFORMATION
  Report Type: Spontaneous
  Country: US (occurrence: US)
  Receive Date: 20141013
  Receipt Date: 20150521
  Transmission Date: 20150821
  Serious: No
  Sender: FDA-Public Use
  Company Number: US-PFIZER INC-2014280158

PATIENT
  Age: 65 Year
  Sex: Male
  Weight: 93.42 kg

DRUGS (5)
  1. NORPACE [Suspect]
     Active Substance: DISOPYRAMIDE PHOSPHATE
     Dosage: 150 MG, 2X/DAY
  2. NORPACE [Suspect]
     Active Substance: DISOPYRAMIDE PHOSPHATE
     Dosage: 150 MG, 1X/DAY
  3. NORPACE [Suspect]
     Active Substance: DISOPYRAMIDE PHOSPHATE
     Dosage: 150 MG, UNK
  4. NORPACE [Suspect]
     Active Substance: DISOPYRAMIDE PHOSPHATE
     Dosage: 100 MG, UNK
  5. NORPACE [Suspect]
     Active Substance: DISOPYRAMIDE PHOSPHATE
     Indication: ARRHYTHMIA
     Dosage: 150 MG, 2X/DAY
     Dates: start: 2003

REACTIONS (1)
  - Prostatic specific antigen increased [Unknown]
